FAERS Safety Report 14462267 (Version 3)
Quarter: 2018Q1

REPORT INFORMATION
  Report Type: Spontaneous
  Country: US (occurrence: US)
  Receive Date: 20180130
  Receipt Date: 20180314
  Transmission Date: 20180509
  Serious: Yes (Hospitalization, Other)
  Sender: FDA-Public Use
  Company Number: US-GEHC-2018CSU000396

PATIENT
  Age: 88 Year
  Sex: Female
  Weight: 56 kg

DRUGS (3)
  1. OMNIPAQUE [Suspect]
     Active Substance: IOHEXOL
     Indication: DEEP VEIN THROMBOSIS
     Dosage: 100 ML, SINGLE
     Route: 042
     Dates: start: 20180123, end: 20180123
  2. HEPARIN [Concomitant]
     Active Substance: HEPARIN SODIUM
     Indication: DEEP VEIN THROMBOSIS
  3. COUMADIN [Concomitant]
     Active Substance: WARFARIN SODIUM
     Indication: DEEP VEIN THROMBOSIS

REACTIONS (2)
  - Compartment syndrome [Unknown]
  - Extravasation [Unknown]

NARRATIVE: CASE EVENT DATE: 20180123
